FAERS Safety Report 25989030 (Version 3)
Quarter: 2025Q4

REPORT INFORMATION
  Report Type: Report from Study
  Country: EU (occurrence: EU)
  Receive Date: 20251103
  Receipt Date: 20251118
  Transmission Date: 20260117
  Serious: Yes (Other)
  Sender: ABBVIE
  Company Number: EU-ABBVIE-6525036

PATIENT
  Age: 36 Year
  Sex: Male

DRUGS (1)
  1. HUMIRA [Suspect]
     Active Substance: ADALIMUMAB
     Indication: Crohn^s disease
     Route: 058
     Dates: start: 20231011, end: 2025

REACTIONS (5)
  - Radius fracture [Recovering/Resolving]
  - Drug specific antibody present [Unknown]
  - Fall [Unknown]
  - Therapeutic product effect decreased [Unknown]
  - Wrist fracture [Unknown]

NARRATIVE: CASE EVENT DATE: 20250101
